FAERS Safety Report 23068977 (Version 1)
Quarter: 2023Q4

REPORT INFORMATION
  Report Type: Spontaneous
  Country: US (occurrence: US)
  Receive Date: 20231016
  Receipt Date: 20231016
  Transmission Date: 20240110
  Serious: Yes (Hospitalization)
  Sender: FDA-Public Use
  Company Number: US-JNJFOC-20231015670

PATIENT
  Age: 52 Year
  Sex: Male
  Weight: 113.95 kg

DRUGS (6)
  1. INVEGA SUSTENNA [Suspect]
     Active Substance: PALIPERIDONE PALMITATE
     Indication: Schizophrenia
     Route: 030
     Dates: start: 20220616
  2. INVEGA SUSTENNA [Suspect]
     Active Substance: PALIPERIDONE PALMITATE
     Route: 030
     Dates: start: 20220718
  3. INVEGA SUSTENNA [Suspect]
     Active Substance: PALIPERIDONE PALMITATE
     Route: 030
     Dates: start: 20230911
  4. INVEGA SUSTENNA [Suspect]
     Active Substance: PALIPERIDONE PALMITATE
     Route: 030
     Dates: start: 20230831
  5. INVEGA [Suspect]
     Active Substance: PALIPERIDONE
     Indication: Schizoaffective disorder
     Route: 048
     Dates: start: 202309, end: 20230911
  6. INVEGA [Suspect]
     Active Substance: PALIPERIDONE
     Indication: Bipolar disorder

REACTIONS (2)
  - Schizoaffective disorder bipolar type [Recovered/Resolved]
  - Product dose omission issue [Unknown]

NARRATIVE: CASE EVENT DATE: 20230906
